FAERS Safety Report 23742604 (Version 1)
Quarter: 2024Q2

REPORT INFORMATION
  Report Type: Spontaneous
  Country: US (occurrence: US)
  Receive Date: 20240415
  Receipt Date: 20240415
  Transmission Date: 20240715
  Serious: Yes (Other)
  Sender: FDA-Public Use
  Company Number: US-BIOCODEX2-2023001040

PATIENT
  Age: 2 Year
  Sex: Male
  Weight: 15.9 kg

DRUGS (7)
  1. DIACOMIT [Suspect]
     Active Substance: STIRIPENTOL
     Indication: Cytogenetic abnormality
     Dosage: DAYS 1-14: 250 MG TWICE DAILY
     Route: 048
  2. DIACOMIT [Suspect]
     Active Substance: STIRIPENTOL
     Indication: Cytogenetic abnormality
     Dosage: DAYS 15-28: 250 MG AND 500 MG IN SEPARATE DOSES EACH DAY
     Route: 048
  3. DIACOMIT [Suspect]
     Active Substance: STIRIPENTOL
     Indication: Cytogenetic abnormality
     Dosage: DAYS 29 AND THEREAFTER: 500 MG TWICE DAILY
     Route: 048
     Dates: start: 20230719
  4. DIACOMIT [Suspect]
     Active Substance: STIRIPENTOL
     Indication: Cytogenetic abnormality
     Dosage: 500 MG TWICE DAILY WITH MEALS
     Route: 048
     Dates: start: 20230719
  5. DIACOMIT [Suspect]
     Active Substance: STIRIPENTOL
     Indication: Cytogenetic abnormality
     Dosage: 750 MG BY MOUTH TWICE DAILY
     Route: 048
     Dates: start: 20230719
  6. CLOBAZAM [Concomitant]
     Active Substance: CLOBAZAM
     Indication: Severe myoclonic epilepsy of infancy
     Route: 065
  7. KEPPRA [Concomitant]
     Active Substance: LEVETIRACETAM
     Indication: Product used for unknown indication
     Route: 065

REACTIONS (4)
  - Product preparation issue [Unknown]
  - Incorrect dose administered [Recovered/Resolved]
  - Alopecia [Unknown]
  - Seizure [Unknown]

NARRATIVE: CASE EVENT DATE: 20230718
